FAERS Safety Report 9421910 (Version 1)
Quarter: 2013Q3

REPORT INFORMATION
  Report Type: Spontaneous
  Country: US (occurrence: US)
  Receive Date: 20130726
  Receipt Date: 20130726
  Transmission Date: 20140515
  Serious: No
  Sender: FDA-Public Use
  Company Number: US-PFIZER INC-2013215104

PATIENT
  Age: 75 Year
  Sex: Female

DRUGS (1)
  1. XALATAN [Suspect]
     Indication: INTRAOCULAR PRESSURE TEST ABNORMAL
     Dosage: 0.005 %, 1X/DAY (ONE DROP IN BOTH EYES)
     Route: 047
     Dates: start: 20120314, end: 20120516

REACTIONS (1)
  - Drug ineffective [Unknown]
